FAERS Safety Report 17880911 (Version 2)
Quarter: 2020Q2

REPORT INFORMATION
  Report Type: Spontaneous
  Country: JP (occurrence: JP)
  Receive Date: 20200610
  Receipt Date: 20200623
  Transmission Date: 20200714
  Serious: Yes (Other)
  Sender: FDA-Public Use
  Company Number: JP-PFIZER INC-2020224010

PATIENT
  Age: 79 Year
  Sex: Female
  Weight: 52.6 kg

DRUGS (7)
  1. PREDNISOLONE. [Concomitant]
     Active Substance: PREDNISOLONE
     Dosage: 1 MG
  2. ALINAMIN F [FURSULTIAMINE HYDROCHLORIDE] [Concomitant]
     Dosage: 25 MG
  3. LORBRENA [Suspect]
     Active Substance: LORLATINIB
     Indication: LUNG NEOPLASM MALIGNANT
     Dosage: 100 MG, 1X/DAY
     Route: 048
     Dates: start: 20200526, end: 20200528
  4. PROMAC D [Concomitant]
     Active Substance: POLAPREZINC
     Dosage: 75 MG
  5. LOCHOL [FLUVASTATIN SODIUM] [Concomitant]
     Dosage: 20 MG
  6. NEXIUM [Concomitant]
     Active Substance: ESOMEPRAZOLE MAGNESIUM
     Dosage: 20 MG
  7. NU-LOTAN [Concomitant]
     Active Substance: LOSARTAN POTASSIUM
     Dosage: 50 MG

REACTIONS (7)
  - Decreased appetite [Recovered/Resolved]
  - Head discomfort [Recovered/Resolved]
  - Depersonalisation/derealisation disorder [Recovering/Resolving]
  - Feeling abnormal [Recovered/Resolved]
  - Asthenia [Recovered/Resolved]
  - Psychiatric symptom [Recovering/Resolving]
  - Nightmare [Recovered/Resolved]

NARRATIVE: CASE EVENT DATE: 202005
